FAERS Safety Report 6411591-3 (Version None)
Quarter: 2009Q4

REPORT INFORMATION
  Report Type: 
  Country: None (occurrence: None)
  Receive Date: 20091023
  Receipt Date: 20091015
  Transmission Date: 20100525
  Serious: Yes (Hospitalization)
  Sender: FDA-Public Use
  Company Number: US-JNJFOC-20060802574

PATIENT
  Sex: Male
  Weight: 86.18 kg

DRUGS (21)
  1. DURAGESIC-100 [Suspect]
     Route: 062
  2. DURAGESIC-100 [Suspect]
     Route: 062
  3. DURAGESIC-100 [Suspect]
     Route: 062
  4. DURAGESIC-100 [Suspect]
     Dosage: 50 MCG AND 100 MCG
     Route: 062
  5. DURAGESIC-100 [Suspect]
     Route: 062
  6. DURAGESIC-100 [Suspect]
     Route: 062
  7. DURAGESIC-100 [Suspect]
     Indication: PAIN
     Route: 062
  8. FENTANYL TRANSDERMAL SYSTEM [Suspect]
     Route: 062
  9. FENTANYL TRANSDERMAL SYSTEM [Suspect]
     Indication: ARTHRITIS REACTIVE
     Route: 062
  10. PREDNISOLONE [Suspect]
     Dosage: 2 IN MORNING, 1 IN EVENING
     Route: 048
  11. PREDNISOLONE [Suspect]
     Indication: ARTHRITIS REACTIVE
     Route: 048
  12. OXYCODONE [Concomitant]
     Indication: BREAKTHROUGH PAIN
     Route: 048
  13. RANITIDINE [Concomitant]
     Indication: UVEITIS
     Route: 048
  14. LISINOPRIL [Concomitant]
     Indication: HYPERTENSION
     Route: 048
  15. ZYRTEC [Concomitant]
     Indication: SEASONAL ALLERGY
     Route: 048
  16. LORAZEPAM [Concomitant]
     Route: 065
  17. PROVIGIL [Concomitant]
     Route: 065
  18. AVANDIA [Concomitant]
     Route: 065
  19. ACTOS [Concomitant]
     Indication: DIABETES MELLITUS
     Route: 048
  20. DIOVAN [Concomitant]
     Indication: BLOOD PRESSURE
     Route: 048
  21. ZANTAC [Concomitant]
     Indication: UVEITIS
     Route: 048

REACTIONS (22)
  - ABDOMINAL PAIN LOWER [None]
  - ANXIETY [None]
  - APPLICATION SITE PUSTULES [None]
  - APPLICATION SITE REACTION [None]
  - ASTHENIA [None]
  - CONSTIPATION [None]
  - DIABETES MELLITUS [None]
  - DRUG INEFFECTIVE [None]
  - FALL [None]
  - FUNGAL INFECTION [None]
  - HYPOTENSION [None]
  - INAPPROPRIATE SCHEDULE OF DRUG ADMINISTRATION [None]
  - INSOMNIA [None]
  - LARGE INTESTINE PERFORATION [None]
  - NARCOLEPSY [None]
  - POST PROCEDURAL INFECTION [None]
  - SPINAL FRACTURE [None]
  - SUBARACHNOID HAEMORRHAGE [None]
  - THORACIC VERTEBRAL FRACTURE [None]
  - URTICARIA [None]
  - UVEITIS [None]
  - WRONG TECHNIQUE IN DRUG USAGE PROCESS [None]
